FAERS Safety Report 10261894 (Version 2)
Quarter: 2014Q3

REPORT INFORMATION
  Report Type: Spontaneous
  Country: GB (occurrence: IE)
  Receive Date: 20140626
  Receipt Date: 20140711
  Transmission Date: 20150326
  Serious: Yes (Death, Hospitalization)
  Sender: FDA-Public Use
  Company Number: PHFR2014IE004480

PATIENT
  Age: 62 Year
  Sex: Female

DRUGS (1)
  1. CLOZARIL [Suspect]
     Active Substance: CLOZAPINE
     Indication: SCHIZOPHRENIA
     Dosage: UKN
     Route: 048
     Dates: start: 20081104

REACTIONS (5)
  - White blood cell count increased [Unknown]
  - Neutrophil count increased [Unknown]
  - Death [Fatal]
  - Parkinson^s disease [Unknown]
  - Platelet count increased [Unknown]

NARRATIVE: CASE EVENT DATE: 201406
